FAERS Safety Report 24542715 (Version 1)
Quarter: 2024Q4

REPORT INFORMATION
  Report Type: Spontaneous
  Country: US (occurrence: US)
  Receive Date: 20241024
  Receipt Date: 20241024
  Transmission Date: 20250115
  Serious: No
  Sender: GLENMARK
  Company Number: US-GLENMARK PHARMACEUTICALS-2024GMK093683

PATIENT

DRUGS (2)
  1. RYALTRIS [Suspect]
     Active Substance: MOMETASONE FUROATE MONOHYDRATE\OLOPATADINE HYDROCHLORIDE
     Indication: Rhinitis
     Dosage: 2 DOSAGE FORM, BID (2 SPRAYS IN EACH NOSTRIL TWICE DAILY) (FIRST BOTTLE)
     Route: 045
     Dates: start: 20240730, end: 20240730
  2. RYALTRIS [Suspect]
     Active Substance: MOMETASONE FUROATE MONOHYDRATE\OLOPATADINE HYDROCHLORIDE
     Dosage: 2 DOSAGE FORM, BID (2 SPRAYS IN EACH NOSTRIL TWICE DAILY) (SECOND BOTTLE)
     Route: 045
     Dates: start: 20240820

REACTIONS (2)
  - Product dose omission issue [Unknown]
  - Drug ineffective for unapproved indication [Unknown]

NARRATIVE: CASE EVENT DATE: 20240101
